FAERS Safety Report 9319362 (Version 1)
Quarter: 2013Q2

REPORT INFORMATION
  Report Type: Spontaneous
  Country: US (occurrence: US)
  Receive Date: 20130530
  Receipt Date: 20130530
  Transmission Date: 20140414
  Serious: Yes (Hospitalization)
  Sender: FDA-Public Use
  Company Number: US-BAYER-2013-066483

PATIENT
  Age: 42 Year
  Sex: Female

DRUGS (14)
  1. YAZ [Suspect]
  2. TORADOL [Concomitant]
  3. ZYLOPRIM [Concomitant]
  4. INSULIN [Concomitant]
  5. PROTONIX [Concomitant]
  6. ZOSYN [Concomitant]
  7. ZOCOR [Concomitant]
  8. CLONIDINE [Concomitant]
  9. METFORMIN [Concomitant]
  10. ZOFRAN [Concomitant]
  11. AMBIEN [Concomitant]
  12. LOTENSIN [Concomitant]
  13. LASIX [Concomitant]
  14. LOPRESSOR [Concomitant]

REACTIONS (4)
  - Pulmonary embolism [None]
  - Deep vein thrombosis [Recovered/Resolved]
  - Vena cava thrombosis [None]
  - Thrombophlebitis superficial [None]
